FAERS Safety Report 6135001-9 (Version None)
Quarter: 2009Q1

REPORT INFORMATION
  Report Type: 
  Country: None (occurrence: None)
  Receive Date: 20090327
  Receipt Date: 20090317
  Transmission Date: 20090719
  Serious: Yes (Other)
  Sender: FDA-Public Use
  Company Number: US-JNJFOC-20090103580

PATIENT
  Sex: Female

DRUGS (5)
  1. REMICADE [Suspect]
     Indication: RHEUMATOID ARTHRITIS
     Dosage: THERAPY DURATION ^ABOUT 1 YEAR^
     Route: 042
  2. ENBREL [Suspect]
     Indication: RHEUMATOID ARTHRITIS
     Dosage: THERAPY DURATION ^ABOUT 1 YEAR^
  3. PREDNISONE [Concomitant]
     Indication: RHEUMATOID ARTHRITIS
  4. PLAQUENIL [Concomitant]
     Indication: RHEUMATOID ARTHRITIS
  5. ANALGESIC [Concomitant]
     Indication: PAIN

REACTIONS (5)
  - DYSPNOEA [None]
  - FIBROMYALGIA [None]
  - LUPUS-LIKE SYNDROME [None]
  - RENAL FAILURE [None]
  - SURGERY [None]
